FAERS Safety Report 14694867 (Version 2)
Quarter: 2018Q2

REPORT INFORMATION
  Report Type: Spontaneous
  Country: JP (occurrence: JP)
  Receive Date: 20180329
  Receipt Date: 20180403
  Transmission Date: 20180711
  Serious: Yes (Other)
  Sender: FDA-Public Use
  Company Number: JP-BAYER-2018-058164

PATIENT
  Age: 66 Year
  Sex: Male
  Weight: 69 kg

DRUGS (16)
  1. HEPARIN [Concomitant]
     Active Substance: HEPARIN SODIUM
     Dosage: DAILY DOSE 10000 DF
     Route: 042
  2. PROPOFOL. [Concomitant]
     Active Substance: PROPOFOL
     Indication: CAROTID ENDARTERECTOMY
     Dosage: DAILY DOSE 2 ?G
  3. BAYASPIRIN 100 MG [Suspect]
     Active Substance: ASPIRIN
     Indication: CAROTID ARTERY STENOSIS
     Dosage: DAILY DOSE 100 MG
     Route: 048
  4. HEPARIN [Concomitant]
     Active Substance: HEPARIN SODIUM
     Dosage: DAILY DOSE 12000 DF
     Route: 042
  5. CILOSTAZOL. [Interacting]
     Active Substance: CILOSTAZOL
     Indication: CEREBRAL INFARCTION
     Dosage: UNK
     Route: 048
  6. WARFARIN POTASSIUM [Interacting]
     Active Substance: WARFARIN POTASSIUM
     Dosage: DAILY DOSE 2.5 MG
     Route: 048
  7. BAYASPIRIN 100 MG [Interacting]
     Active Substance: ASPIRIN
     Indication: CAROTID ARTERY STENOSIS
     Dosage: DAILY DOSE 100 MG
     Route: 048
  8. HEPARIN [Concomitant]
     Active Substance: HEPARIN SODIUM
     Dosage: 5000 DF, UNK
     Route: 042
  9. PROPOFOL. [Concomitant]
     Active Substance: PROPOFOL
     Indication: CAROTID ENDARTERECTOMY
     Dosage: DAILY DOSE 300 MG/HR
  10. CILOSTAZOL. [Interacting]
     Active Substance: CILOSTAZOL
     Indication: CEREBRAL INFARCTION
     Dosage: DAILY DOSE 200 MG
     Route: 048
  11. REMIFENTANIL [Concomitant]
     Active Substance: REMIFENTANIL
     Indication: CAROTID ENDARTERECTOMY
     Dosage: DAILY DOSE 0.3 ?G
  12. WARFARIN POTASSIUM [Interacting]
     Active Substance: WARFARIN POTASSIUM
     Dosage: DAILY DOSE 2 MG
     Route: 048
  13. FENTANYL. [Concomitant]
     Active Substance: FENTANYL
     Indication: CAROTID ENDARTERECTOMY
     Dosage: DAILY DOSE 100 ?G
  14. REMIFENTANIL [Concomitant]
     Active Substance: REMIFENTANIL
     Indication: CAROTID ENDARTERECTOMY
     Dosage: DAILY DOSE 0.5 ?G
  15. REMIFENTANIL [Concomitant]
     Active Substance: REMIFENTANIL
     Indication: CAROTID ENDARTERECTOMY
     Dosage: DAILY DOSE 0.25 ?G
  16. PROPOFOL. [Concomitant]
     Active Substance: PROPOFOL
     Indication: CAROTID ENDARTERECTOMY
     Dosage: DAILY DOSE 3 ?G

REACTIONS (5)
  - Drug administration error [Unknown]
  - Laryngeal haematoma [Unknown]
  - Drug interaction [Unknown]
  - Paralysis recurrent laryngeal nerve [Unknown]
  - Labelled drug-drug interaction medication error [Unknown]
